FAERS Safety Report 8388667-7 (Version None)
Quarter: 2012Q2

REPORT INFORMATION
  Report Type: 
  Country: None (occurrence: None)
  Receive Date: 20120525
  Receipt Date: 20120523
  Transmission Date: 20120825
  Serious: Yes (Other)
  Sender: FDA-Public Use
  Company Number: CA-ABBOTT-12P-028-0894958-00

PATIENT
  Sex: Male
  Weight: 99.88 kg

DRUGS (3)
  1. PLAVIX [Concomitant]
     Indication: PRODUCT USED FOR UNKNOWN INDICATION
  2. LUPRON DEPOT [Suspect]
     Indication: PROSTATE CANCER
     Route: 030
     Dates: start: 20060109
  3. ASPIRIN [Concomitant]
     Indication: PRODUCT USED FOR UNKNOWN INDICATION

REACTIONS (6)
  - LIGAMENT RUPTURE [None]
  - TENDON RUPTURE [None]
  - CALCINOSIS [None]
  - BLOOD POTASSIUM DECREASED [None]
  - MUSCULOSKELETAL PAIN [None]
  - PARAESTHESIA [None]
